FAERS Safety Report 5026480-9 (Version None)
Quarter: 2006Q2

REPORT INFORMATION
  Report Type: 
  Country: None (occurrence: None)
  Receive Date: 20060613
  Receipt Date: 20060613
  Transmission Date: 20061013
  Serious: Yes (Life-Threatening)
  Sender: FDA-Public Use
  Company Number: None

PATIENT
  Age: 41 Year
  Sex: Male
  Weight: 12.4739 kg

DRUGS (1)
  1. PROTAMINE SULFATE [Suspect]
     Indication: PROTHROMBIN TIME PROLONGED
     Dosage: 20 MG X1 IV
     Route: 042
     Dates: start: 20060605

REACTIONS (1)
  - CARDIO-RESPIRATORY ARREST [None]
